FAERS Safety Report 20672074 (Version 1)
Quarter: 2022Q2

REPORT INFORMATION
  Report Type: Spontaneous
  Country: FR (occurrence: FR)
  Receive Date: 20220405
  Receipt Date: 20220405
  Transmission Date: 20220721
  Serious: Yes (Other)
  Sender: FDA-Public Use
  Company Number: FR-SANOFI-01013996

PATIENT
  Age: 63 Year
  Sex: Female
  Weight: 75 kg

DRUGS (2)
  1. ISONIAZID\RIFAMPIN [Suspect]
     Active Substance: ISONIAZID\RIFAMPIN
     Indication: Tuberculosis
     Dosage: 300 MG, BID
     Dates: start: 20220124
  2. ISONIAZID\RIFAMPIN [Suspect]
     Active Substance: ISONIAZID\RIFAMPIN
     Dosage: 150 MG, BID
     Dates: end: 20220319

REACTIONS (2)
  - Haematochezia [Recovered/Resolved]
  - Cough [Unknown]

NARRATIVE: CASE EVENT DATE: 20220127
